FAERS Safety Report 8732972 (Version 3)
Quarter: 2012Q4

REPORT INFORMATION
  Report Type: 
  Country: IN (occurrence: IN)
  Receive Date: 20120820
  Receipt Date: 20120906
  Transmission Date: 20130627
  Serious: Yes (Disabling, Other)
  Sender: FDA-Public Use
  Company Number: IN-ALLERGAN-1210997US

PATIENT
  Age: 58 Year
  Sex: Male

DRUGS (1)
  1. OZURDEX [Suspect]
     Indication: PROLIFERATIVE DIABETIC RETINOPATHY
     Dosage: 0.7 mg, single
     Route: 031
     Dates: start: 20120808, end: 20120808

REACTIONS (4)
  - Visual acuity reduced [Not Recovered/Not Resolved]
  - Medical device complication [Not Recovered/Not Resolved]
  - Vitreous haemorrhage [Not Recovered/Not Resolved]
  - Off label use [Unknown]
